FAERS Safety Report 8288167-9 (Version None)
Quarter: 2012Q2

REPORT INFORMATION
  Report Type: 
  Country: None (occurrence: None)
  Receive Date: 20120416
  Receipt Date: 20120405
  Transmission Date: 20120825
  Serious: Yes (Hospitalization)
  Sender: FDA-Public Use
  Company Number: US-ASTRAZENECA-2012SE22792

PATIENT
  Age: 44 Year
  Sex: Female

DRUGS (5)
  1. SEROQUEL [Suspect]
     Indication: BIPOLAR I DISORDER
     Route: 048
  2. LOREZEPAM [Concomitant]
  3. SEROQUEL [Suspect]
     Indication: BIPOLAR DISORDER
     Route: 048
  4. EFFEXOR [Concomitant]
  5. LITHIUM [Concomitant]

REACTIONS (6)
  - SLUGGISHNESS [None]
  - INCORRECT DOSE ADMINISTERED [None]
  - COMMUNICATION DISORDER [None]
  - FATIGUE [None]
  - SOMNOLENCE [None]
  - LETHARGY [None]
